FAERS Safety Report 25128403 (Version 1)
Quarter: 2025Q1

REPORT INFORMATION
  Report Type: Spontaneous
  Country: US (occurrence: None)
  Receive Date: 20250326
  Receipt Date: 20250326
  Transmission Date: 20250408
  Serious: Yes (Other)
  Sender: FDA-CTU
  Company Number: None

PATIENT
  Sex: Female

DRUGS (11)
  1. GLATIRAMER [Suspect]
     Active Substance: GLATIRAMER
     Indication: Multiple sclerosis
     Dosage: FREQUENCY : 3 TIMES A DAY;?
     Route: 048
     Dates: start: 20221203
  2. ALBUTEROL AER HFA [Concomitant]
  3. ATORVASTATIN [Concomitant]
     Active Substance: ATORVASTATIN
  4. BOTOX INJ 100UNIT [Concomitant]
  5. DULOXETINE CAP 60MG [Concomitant]
  6. ESTRADIOL MICRONIZED [Concomitant]
  7. HYDROCODONE POW BITARTRA [Concomitant]
  8. METFORMIN TAB 850MG [Concomitant]
  9. METHOCARBAM TAB 500MG [Concomitant]
  10. MYRBETRIQ TAB 25MG [Concomitant]
  11. MYRBETRIQ [Concomitant]
     Active Substance: MIRABEGRON

REACTIONS (2)
  - Neoplasm malignant [None]
  - Therapy interrupted [None]
